FAERS Safety Report 7481455-5 (Version None)
Quarter: 2011Q2

REPORT INFORMATION
  Report Type: 
  Country: None (occurrence: None)
  Receive Date: 20110516
  Receipt Date: 20110502
  Transmission Date: 20111010
  Serious: Yes (Hospitalization, Other)
  Sender: FDA-Public Use
  Company Number: PHHY2010CA51450

PATIENT
  Sex: Male

DRUGS (4)
  1. ZOMETA [Suspect]
     Indication: PROSTATE CANCER
     Dosage: 4 MG, EVERY 8 WEEKS
     Route: 042
     Dates: start: 20100707
  2. ZOMETA [Suspect]
     Dosage: 4 MG, EVERY 12 WEEKS
     Route: 042
  3. CAPECITABINE [Concomitant]
     Dosage: UNK
     Route: 048
  4. XELODA [Concomitant]
     Dosage: UNK

REACTIONS (17)
  - PULMONARY THROMBOSIS [None]
  - POVERTY OF THOUGHT CONTENT [None]
  - RED CELL DISTRIBUTION WIDTH INCREASED [None]
  - BLOOD ALKALINE PHOSPHATASE INCREASED [None]
  - GAMMA-GLUTAMYLTRANSFERASE INCREASED [None]
  - GENERAL PHYSICAL HEALTH DETERIORATION [None]
  - ASPARTATE AMINOTRANSFERASE INCREASED [None]
  - HAEMOGLOBIN DECREASED [None]
  - MALAISE [None]
  - BLOOD ALBUMIN DECREASED [None]
  - BACK PAIN [None]
  - LYMPHOCYTE COUNT DECREASED [None]
  - FEBRILE NEUTROPENIA [None]
  - NEUTROPHIL COUNT INCREASED [None]
  - MUSCULOSKELETAL STIFFNESS [None]
  - PALLOR [None]
  - NAUSEA [None]
